FAERS Safety Report 23181760 (Version 1)
Quarter: 2023Q4

REPORT INFORMATION
  Report Type: Report from Study
  Country: US (occurrence: US)
  Receive Date: 20231114
  Receipt Date: 20231114
  Transmission Date: 20240110
  Serious: Yes (Other)
  Sender: FDA-Public Use
  Company Number: US-OTSUKA-2023_029318

PATIENT
  Sex: Male
  Weight: 68.5 kg

DRUGS (1)
  1. CEDAZURIDINE\DECITABINE [Suspect]
     Active Substance: CEDAZURIDINE\DECITABINE
     Indication: Myelodysplastic syndrome
     Dosage: 1 DF (35 MG DECITABINE + 100 MG CEDAZURIDINE) DAILY ON DAYS 1-5 OF EACH 28 DAY CYCLE
     Route: 048
     Dates: start: 20231020

REACTIONS (2)
  - Platelet transfusion [Unknown]
  - Fatigue [Recovering/Resolving]
